FAERS Safety Report 8956271 (Version 2)
Quarter: 2012Q4

REPORT INFORMATION
  Report Type: Report from Study
  Country: JP (occurrence: JP)
  Receive Date: 20121210
  Receipt Date: 20121227
  Transmission Date: 20130627
  Serious: Yes (Other)
  Sender: FDA-Public Use
  Company Number: JP-ASTELLAS-2012JP008310

PATIENT
  Sex: Female

DRUGS (9)
  1. MIRABEGRON [Suspect]
     Indication: HYPERTONIC BLADDER
     Dosage: 50 mg, UID/QD
     Route: 048
     Dates: start: 20120522, end: 20120731
  2. MIRABEGRON [Suspect]
     Dosage: UNK
     Route: 048
     Dates: start: 20120828
  3. HACHIMIJIO-GAN [Concomitant]
     Indication: HYPERTONIC BLADDER
     Dosage: 7.5 g, Unknown/D
     Route: 048
  4. HUMALOG [Concomitant]
     Indication: DIABETES MELLITUS
     Dosage: 15 IU, Unknown/D
     Route: 065
  5. SPIROPENT [Concomitant]
     Indication: STRESS URINARY INCONTINENCE
     Dosage: 20 ug, Unknown/D
     Route: 048
  6. LYRICA [Concomitant]
     Indication: DIABETES MELLITUS
     Dosage: 150 mg, Unknown/D
     Route: 048
  7. JUVELA N [Concomitant]
     Indication: HYPERLIPIDAEMIA
     Dosage: 200 mg, Unknown/D
     Route: 048
  8. METGLUCO [Concomitant]
     Indication: DIABETES MELLITUS
     Dosage: 250 mg, UID/QD
     Route: 048
  9. EBASTEL [Concomitant]
     Indication: PROPHYLAXIS
     Dosage: 5 mg, Unknown/D
     Route: 048

REACTIONS (1)
  - Leukoplakia oral [Unknown]
